FAERS Safety Report 9613858 (Version 2)
Quarter: 2013Q4

REPORT INFORMATION
  Report Type: Spontaneous
  Country: US (occurrence: US)
  Receive Date: 20131010
  Receipt Date: 20131010
  Transmission Date: 20140711
  Serious: No
  Sender: FDA-Public Use
  Company Number: US-ALLERGAN-1312230US

PATIENT
  Sex: Female

DRUGS (2)
  1. VANIQA [Suspect]
     Indication: HAIR GROWTH ABNORMAL
     Dosage: 1 DF, UNK
     Route: 061
  2. VANIQA [Suspect]
     Dosage: DF
     Route: 061

REACTIONS (3)
  - Pain of skin [Recovered/Resolved]
  - Skin irritation [Recovered/Resolved]
  - Ingrown hair [Recovered/Resolved]
